FAERS Safety Report 16402553 (Version 1)
Quarter: 2019Q2

REPORT INFORMATION
  Report Type: Spontaneous
  Country: US (occurrence: US)
  Receive Date: 20190607
  Receipt Date: 20190607
  Transmission Date: 20190711
  Serious: No
  Sender: FDA-Public Use
  Company Number: US-MALLINCKRODT-T201801867

PATIENT
  Sex: Female

DRUGS (1)
  1. HYDROCODONE/ACETAMINOPHEN [Suspect]
     Active Substance: ACETAMINOPHEN\HYDROCODONE
     Indication: PAIN
     Dosage: 5/325MG, 1 TABLET EVERY 4 HOURS(UP TO 5 TABLETS PER DAY)
     Route: 065

REACTIONS (3)
  - Paraesthesia oral [Unknown]
  - Flushing [Unknown]
  - Feeling abnormal [Unknown]
